FAERS Safety Report 6220576-1 (Version None)
Quarter: 2009Q2

REPORT INFORMATION
  Report Type: 
  Country: None (occurrence: None)
  Receive Date: 20090610
  Receipt Date: 20090528
  Transmission Date: 20091009
  Serious: Yes (Hospitalization)
  Sender: FDA-Public Use
  Company Number: BR-BIOGENIDEC-2009BI016416

PATIENT
  Age: 68 Year
  Sex: Male

DRUGS (1)
  1. AVONEX [Suspect]
     Indication: MULTIPLE SCLEROSIS
     Route: 030
     Dates: start: 20060101, end: 20080101

REACTIONS (8)
  - AGITATION [None]
  - BALANCE DISORDER [None]
  - BURNING SENSATION [None]
  - CONFUSIONAL STATE [None]
  - COORDINATION ABNORMAL [None]
  - GAIT DISTURBANCE [None]
  - LOSS OF CONTROL OF LEGS [None]
  - MEMORY IMPAIRMENT [None]
